FAERS Safety Report 25854465 (Version 1)
Quarter: 2025Q3

REPORT INFORMATION
  Report Type: Spontaneous
  Country: US (occurrence: US)
  Receive Date: 20250927
  Receipt Date: 20250927
  Transmission Date: 20251021
  Serious: No
  Sender: ABBVIE
  Company Number: US-ABBVIE-6477270

PATIENT
  Sex: Female

DRUGS (3)
  1. VYALEV [Suspect]
     Active Substance: FOSCARBIDOPA\FOSLEVODOPA
     Indication: Parkinson^s disease
     Route: 058
     Dates: start: 2025
  2. VYALEV [Suspect]
     Active Substance: FOSCARBIDOPA\FOSLEVODOPA
     Route: 058
     Dates: start: 2025, end: 2025
  3. VYALEV [Suspect]
     Active Substance: FOSCARBIDOPA\FOSLEVODOPA
     Route: 058
     Dates: start: 2025, end: 2025

REACTIONS (15)
  - Aggression [Recovering/Resolving]
  - Dysstasia [Unknown]
  - Panic attack [Unknown]
  - Dyspnoea [Unknown]
  - Chest pain [Unknown]
  - Pain in extremity [Unknown]
  - Skin discolouration [Unknown]
  - On and off phenomenon [Not Recovered/Not Resolved]
  - Restlessness [Unknown]
  - Depression [Unknown]
  - Disorientation [Unknown]
  - Memory impairment [Unknown]
  - Hallucination [Not Recovered/Not Resolved]
  - Hypoaesthesia [Unknown]
  - Psychotic symptom [Recovering/Resolving]

NARRATIVE: CASE EVENT DATE: 20250101
